FAERS Safety Report 5316298-1 (Version None)
Quarter: 2007Q2

REPORT INFORMATION
  Report Type: 
  Country: None (occurrence: None)
  Receive Date: 20070430
  Receipt Date: 20070419
  Transmission Date: 20071010
  Serious: Yes (Life-Threatening, Hospitalization)
  Sender: FDA-Public Use
  Company Number: WAES 0704USA04604

PATIENT
  Age: 60 Year
  Sex: Female

DRUGS (11)
  1. DECADRON [Suspect]
     Dosage: 8 MG/BID/PO
     Route: 048
     Dates: start: 20070131
  2. [THERAPY UNSPECIFIED] UNK [Suspect]
  3. CYANOCOBALAMIN [Suspect]
  4. NIFEDIPINE [Suspect]
  5. ZOCOR [Suspect]
     Dosage: PO
     Route: 048
  6. GLIPIZIDE [Suspect]
  7. VITAMIN E [Suspect]
  8. VITAMINS (UNSPECIFIED) UNK [Suspect]
  9. ALPRAZOLAM [Suspect]
  10. PANTOPRAZOLE UNK [Suspect]
  11. FOLIC ACID [Concomitant]

REACTIONS (6)
  - ABSCESS [None]
  - BACTERIAL INFECTION [None]
  - BLOOD GLUCOSE INCREASED [None]
  - CULTURE WOUND POSITIVE [None]
  - NECROSIS [None]
  - NEUTROPENIA [None]
